FAERS Safety Report 6553688-3 (Version None)
Quarter: 2010Q1

REPORT INFORMATION
  Report Type: 
  Country: None (occurrence: None)
  Receive Date: 20100127
  Receipt Date: 20100122
  Transmission Date: 20100710
  Serious: Yes (Death)
  Sender: FDA-Public Use
  Company Number: PHHY2010BR03463

PATIENT
  Sex: Male

DRUGS (1)
  1. FORASEQ [Suspect]

REACTIONS (1)
  - DEATH [None]
